FAERS Safety Report 7907790-1 (Version None)
Quarter: 2011Q4

REPORT INFORMATION
  Report Type: 
  Country: None (occurrence: None)
  Receive Date: 20111110
  Receipt Date: 20101112
  Transmission Date: 20120403
  Serious: No
  Sender: FDA-Public Use
  Company Number: US-BAYER-201041108NA

PATIENT
  Age: 55 Year
  Sex: Female

DRUGS (1)
  1. CLIMARA PRO [Suspect]

REACTIONS (2)
  - SKIN IRRITATION [None]
  - PRODUCT ADHESION ISSUE [None]
